FAERS Safety Report 6929851-6 (Version None)
Quarter: 2010Q3

REPORT INFORMATION
  Report Type: 
  Country: None (occurrence: None)
  Receive Date: 20100817
  Receipt Date: 20100817
  Transmission Date: 20110219
  Serious: Yes (Life-Threatening, Hospitalization)
  Sender: FDA-Public Use
  Company Number: None

PATIENT
  Sex: Male
  Weight: 102.0593 kg

DRUGS (2)
  1. RITUXIMAB GENENTECH [Suspect]
     Indication: RHEUMATOID ARTHRITIS
     Dosage: 1 I.V.
     Route: 042
     Dates: start: 20090706
  2. RITUXIMAB GENENTECH [Suspect]
     Indication: RHEUMATOID ARTHRITIS
     Dosage: 1 I.V.
     Route: 042
     Dates: start: 20090720

REACTIONS (3)
  - INFECTION [None]
  - LICHENOID KERATOSIS [None]
  - PEMPHIGUS [None]
